FAERS Safety Report 5868684-9 (Version None)
Quarter: 2008Q3

REPORT INFORMATION
  Report Type: 
  Country: None (occurrence: None)
  Receive Date: 20080903
  Receipt Date: 20080825
  Transmission Date: 20090109
  Serious: Yes (Other)
  Sender: FDA-Public Use
  Company Number: PHEH2008US07537

PATIENT

DRUGS (1)
  1. SANDOSTATIN [Suspect]
     Dosage: UNK

REACTIONS (2)
  - CATARACT OPERATION [None]
  - SCAR [None]
